FAERS Safety Report 7772562-8 (Version None)
Quarter: 2011Q3

REPORT INFORMATION
  Report Type: 
  Country: None (occurrence: None)
  Receive Date: 20110922
  Receipt Date: 20110706
  Transmission Date: 20111222
  Serious: No
  Sender: FDA-Public Use
  Company Number: US-ASTRAZENECA-2011SE40351

PATIENT
  Age: 47 Year
  Sex: Male

DRUGS (12)
  1. SEROQUEL [Suspect]
     Route: 048
  2. LYRICA [Concomitant]
  3. KLONOPIN [Concomitant]
  4. OTC STOOL SOFTENER [Concomitant]
  5. PARAFON FORTE [Concomitant]
  6. VIAGRA [Concomitant]
  7. TAMSULOSIN HCL [Concomitant]
  8. SEROQUEL [Suspect]
     Indication: SLEEP DISORDER
     Route: 048
  9. INDOCET [Concomitant]
  10. IBUPROPHEN [Concomitant]
  11. WELLBUTRIN [Concomitant]
  12. CALCIUM PILLS [Concomitant]

REACTIONS (2)
  - HYPERSOMNIA [None]
  - OFF LABEL USE [None]
